FAERS Safety Report 4695646-X (Version None)
Quarter: 2005Q2

REPORT INFORMATION
  Report Type: 
  Country: None (occurrence: None)
  Receive Date: 20050608
  Receipt Date: 20050329
  Transmission Date: 20051028
  Serious: Yes (Disabling)
  Sender: FDA-Public Use
  Company Number: A03200500896

PATIENT
  Age: 64 Year
  Sex: Female

DRUGS (1)
  1. ELOXATIN [Suspect]
     Indication: COLON CANCER STAGE III
     Dosage: INTRAVENOUS NOS
     Route: 042
     Dates: start: 20040401, end: 20040401

REACTIONS (11)
  - BALANCE DISORDER [None]
  - BLISTER [None]
  - DIARRHOEA [None]
  - DIZZINESS [None]
  - DYSAESTHESIA PHARYNX [None]
  - DYSARTHRIA [None]
  - DYSPNOEA [None]
  - FALL [None]
  - HYPOAESTHESIA [None]
  - PARAESTHESIA [None]
  - PERIPHERAL SENSORY NEUROPATHY [None]
